FAERS Safety Report 4519669-6 (Version None)
Quarter: 2004Q4

REPORT INFORMATION
  Report Type: 
  Country: None (occurrence: None)
  Receive Date: 20041206
  Receipt Date: 20041130
  Transmission Date: 20050328
  Serious: Yes (Death)
  Sender: FDA-Public Use
  Company Number: PHBS2004BR16048

PATIENT
  Age: 81 Year
  Sex: Female

DRUGS (1)
  1. NITRIDERM TTS [Suspect]
     Indication: CARDIAC DISORDER
     Route: 062

REACTIONS (2)
  - ACUTE PULMONARY OEDEMA [None]
  - PULMONARY OEDEMA [None]
